FAERS Safety Report 6547378-0 (Version None)
Quarter: 2010Q1

REPORT INFORMATION
  Report Type: 
  Country: None (occurrence: None)
  Receive Date: 20100119
  Receipt Date: 20100111
  Transmission Date: 20100710
  Serious: Yes (Hospitalization, Other)
  Sender: FDA-Public Use
  Company Number: USA/USA/10/0008925

PATIENT
  Age: 42 Year
  Sex: Female
  Weight: 46.2669 kg

DRUGS (5)
  1. FEXOFENADINE HYDROCHLORIDE [Suspect]
     Indication: HYPERSENSITIVITY
     Dosage: 180 MG, 1 IN 1 D, PER ORAL
     Route: 048
     Dates: start: 20060101
  2. SINGULAIR [Concomitant]
  3. NASONEX [Concomitant]
  4. AMBIEN CR [Concomitant]
  5. MUCINEX [Concomitant]

REACTIONS (5)
  - ABDOMINAL DISTENSION [None]
  - CHOLECYSTECTOMY [None]
  - COELIAC DISEASE [None]
  - FLATULENCE [None]
  - MALIGNANT MELANOMA [None]
